FAERS Safety Report 7150644-1 (Version None)
Quarter: 2010Q4

REPORT INFORMATION
  Report Type: 
  Country: None (occurrence: None)
  Receive Date: 20101210
  Receipt Date: 20101207
  Transmission Date: 20110411
  Serious: Yes (Death)
  Sender: FDA-Public Use
  Company Number: JP-SANOFI-AVENTIS-2010SA073953

PATIENT
  Age: 61 Year
  Sex: Female
  Weight: 61.4 kg

DRUGS (4)
  1. DOCETAXEL [Suspect]
     Indication: BREAST CANCER
     Route: 041
     Dates: start: 20100913, end: 20100913
  2. DOCETAXEL [Suspect]
     Route: 041
     Dates: start: 20101015, end: 20101015
  3. ENDOXAN [Concomitant]
     Indication: BREAST CANCER
     Dates: start: 20100913, end: 20100913
  4. ENDOXAN [Concomitant]
     Dates: start: 20101015, end: 20101015

REACTIONS (1)
  - DEATH [None]
